FAERS Safety Report 11651616 (Version 1)
Quarter: 2015Q4

REPORT INFORMATION
  Report Type: Spontaneous
  Country: US (occurrence: None)
  Receive Date: 20151021
  Receipt Date: 20151021
  Transmission Date: 20160304
  Serious: No
  Sender: FDA-Public Use
  Company Number: None

PATIENT
  Age: 48 Year
  Sex: Female
  Weight: 96.16 kg

DRUGS (12)
  1. SERTRALINE [Suspect]
     Active Substance: SERTRALINE HYDROCHLORIDE
     Indication: DEPRESSION
     Dosage: 1 PILL
  2. AMBIEN [Concomitant]
     Active Substance: ZOLPIDEM TARTRATE
  3. IBUOROFEN [Concomitant]
  4. DILAUDID [Concomitant]
     Active Substance: HYDROMORPHONE HYDROCHLORIDE
  5. VALIUM [Concomitant]
     Active Substance: DIAZEPAM
  6. NORFLEX [Concomitant]
     Active Substance: ORPHENADRINE CITRATE
  7. ALL GENERIC [Concomitant]
  8. FASLODEX [Concomitant]
     Active Substance: FULVESTRANT
  9. HERCEPTIN [Concomitant]
     Active Substance: TRASTUZUMAB
  10. NEURONTIN [Concomitant]
     Active Substance: GABAPENTIN
  11. SENNA LAXATIVE [Concomitant]
     Active Substance: SENNOSIDES A AND B
  12. BENADRYL [Concomitant]
     Active Substance: DIPHENHYDRAMINE HYDROCHLORIDE

REACTIONS (4)
  - Feeling abnormal [None]
  - Eructation [None]
  - Vomiting [None]
  - Burning sensation [None]

NARRATIVE: CASE EVENT DATE: 20151020
